FAERS Safety Report 16536004 (Version 2)
Quarter: 2019Q3

REPORT INFORMATION
  Report Type: Report from Study
  Country: IT (occurrence: IT)
  Receive Date: 20190705
  Receipt Date: 20190709
  Transmission Date: 20191004
  Serious: Yes (Other)
  Sender: FDA-Public Use
  Company Number: IT-ASTRAZENECA-2019SE94706

PATIENT
  Age: 23234 Day
  Sex: Male
  Weight: 58 kg

DRUGS (2)
  1. INSULIN [Concomitant]
     Active Substance: INSULIN NOS
     Dosage: 10 U/ DAY
     Route: 058
     Dates: start: 20190120
  2. DURVALUMAB. [Suspect]
     Active Substance: DURVALUMAB
     Indication: NON-SMALL CELL LUNG CANCER
     Dosage: MONOTHERAPY10 MG/KG VIA INTRAVENOUS (IV) INFUSION EVERY 2 WEEKS (Q2W) UNTIL PROGRESSION OF DISEAS...
     Route: 042

REACTIONS (1)
  - Diabetes mellitus [Not Recovered/Not Resolved]

NARRATIVE: CASE EVENT DATE: 20190116
